FAERS Safety Report 12975921 (Version 2)
Quarter: 2016Q4

REPORT INFORMATION
  Report Type: Spontaneous
  Country: DE (occurrence: DE)
  Receive Date: 20161125
  Receipt Date: 20161201
  Transmission Date: 20170207
  Serious: Yes (Other)
  Sender: FDA-Public Use
  Company Number: DE-MYLANLABS-2016M1051533

PATIENT

DRUGS (23)
  1. CLOZAPINE. [Suspect]
     Active Substance: CLOZAPINE
     Indication: SCHIZOPHRENIA
     Dosage: 25 MG, QD
     Route: 048
     Dates: start: 20160413, end: 20160417
  2. CLOZAPINE. [Suspect]
     Active Substance: CLOZAPINE
     Dosage: 125 MG, QD
     Route: 048
     Dates: start: 20160429, end: 20160501
  3. RISPERDAL [Concomitant]
     Active Substance: RISPERIDONE
     Dosage: 6 MG, QD
     Route: 048
     Dates: start: 20160215, end: 20160217
  4. ABILIFY [Concomitant]
     Active Substance: ARIPIPRAZOLE
     Dosage: 10 MG, UNK
     Route: 048
     Dates: start: 20160215, end: 20160224
  5. RISPERDAL [Concomitant]
     Active Substance: RISPERIDONE
     Indication: PRODUCT USED FOR UNKNOWN INDICATION
     Dosage: 8 MG, QD
     Route: 048
     Dates: end: 20160214
  6. RISPERDAL [Concomitant]
     Active Substance: RISPERIDONE
     Dosage: 2 MG, QD
     Route: 048
     Dates: start: 20160301, end: 20160302
  7. RISPERDAL [Concomitant]
     Active Substance: RISPERIDONE
     Dosage: 1 MG, QD
     Route: 048
     Dates: start: 20160303, end: 20160307
  8. AKINETON [Concomitant]
     Active Substance: BIPERIDEN HYDROCHLORIDE
     Indication: PRODUCT USED FOR UNKNOWN INDICATION
     Dosage: 4 MG, QD
     Route: 048
  9. KEPPRA [Concomitant]
     Active Substance: LEVETIRACETAM
     Indication: PRODUCT USED FOR UNKNOWN INDICATION
     Dosage: UNK UNK, QD
     Route: 048
  10. CLOZAPINE. [Suspect]
     Active Substance: CLOZAPINE
     Dosage: 100 MG, QD
     Route: 048
     Dates: start: 20160426, end: 20160428
  11. ABILIFY [Concomitant]
     Active Substance: ARIPIPRAZOLE
     Dosage: 15 MG, UNK
     Route: 048
     Dates: start: 20160225, end: 20160229
  12. ABILIFY [Concomitant]
     Active Substance: ARIPIPRAZOLE
     Dosage: 20 MG, UNK
     Route: 048
     Dates: start: 20160301, end: 20160427
  13. RISPERDAL [Concomitant]
     Active Substance: RISPERIDONE
     Dosage: 5 MG, QD
     Route: 048
     Dates: start: 20160218, end: 20160223
  14. CLOZAPINE. [Suspect]
     Active Substance: CLOZAPINE
     Dosage: 50 MG, QD
     Route: 048
     Dates: start: 20160418, end: 20160422
  15. CLOZAPINE. [Suspect]
     Active Substance: CLOZAPINE
     Dosage: 150 MG, QD
     Route: 048
     Dates: start: 20160502, end: 20160503
  16. RISPERDAL [Concomitant]
     Active Substance: RISPERIDONE
     Dosage: 2 MG, QD
     Route: 048
     Dates: start: 20160505, end: 20160509
  17. ABILIFY [Concomitant]
     Active Substance: ARIPIPRAZOLE
     Dosage: 10 MG, UNK
     Route: 048
     Dates: start: 20160428, end: 20160505
  18. RISPERDAL [Concomitant]
     Active Substance: RISPERIDONE
     Dosage: 4 MG, QD
     Route: 048
     Dates: start: 20160224, end: 20160229
  19. RISPERDAL [Concomitant]
     Active Substance: RISPERIDONE
     Dosage: 4 MG, QD
     Route: 048
     Dates: start: 20160311, end: 20160504
  20. CLOZAPINE. [Suspect]
     Active Substance: CLOZAPINE
     Dosage: 75 MG, QD
     Route: 048
     Dates: start: 20160423, end: 20160425
  21. ABILIFY [Concomitant]
     Active Substance: ARIPIPRAZOLE
     Indication: PRODUCT USED FOR UNKNOWN INDICATION
     Dosage: 5 MG, QD
     Route: 048
     Dates: start: 20160211, end: 20160214
  22. RISPERDAL [Concomitant]
     Active Substance: RISPERIDONE
     Dosage: 0.5 MG, QD
     Route: 048
     Dates: start: 20160308, end: 20160310
  23. MELPERON [Concomitant]
     Active Substance: MELPERONE
     Indication: PRODUCT USED FOR UNKNOWN INDICATION
     Dosage: 25 MG, QD
     Route: 048

REACTIONS (2)
  - Myocarditis [Recovered/Resolved]
  - Pericarditis [Recovered/Resolved]

NARRATIVE: CASE EVENT DATE: 20160503
